FAERS Safety Report 6158824-9 (Version None)
Quarter: 2009Q2

REPORT INFORMATION
  Report Type: 
  Country: None (occurrence: None)
  Receive Date: 20090417
  Receipt Date: 20090410
  Transmission Date: 20091009
  Serious: Yes (Hospitalization)
  Sender: FDA-Public Use
  Company Number: US-ASTRAZENECA-2007UW25626

PATIENT
  Age: 37 Year
  Sex: Female
  Weight: 72.6 kg

DRUGS (7)
  1. SEROQUEL [Suspect]
     Indication: SCHIZOPHRENIA
     Dosage: 50 MG AND 100 MG
     Route: 048
     Dates: start: 20050101, end: 20080101
  2. SEROQUEL [Suspect]
     Indication: BIPOLAR DISORDER
     Dosage: 50 MG AND 100 MG
     Route: 048
     Dates: start: 20050101, end: 20080101
  3. HALDOL [Concomitant]
  4. CITALOPRAM HYDROBROMIDE [Concomitant]
  5. BENZTROPINE MESYLATE [Concomitant]
  6. LITHIUM CARBONATE [Concomitant]
  7. DIAZEPAM [Concomitant]

REACTIONS (2)
  - LUNG INFECTION [None]
  - TYPE 1 DIABETES MELLITUS [None]
